FAERS Safety Report 8907701 (Version 4)
Quarter: 2017Q1

REPORT INFORMATION
  Report Type: Spontaneous
  Country: DK (occurrence: DK)
  Receive Date: 20121114
  Receipt Date: 20170310
  Transmission Date: 20170429
  Serious: Yes (Hospitalization, Disabling)
  Sender: FDA-Public Use
  Company Number: DK-PFIZER INC-2012280684

PATIENT
  Age: 7 Year
  Sex: Male
  Weight: 24 kg

DRUGS (4)
  1. HYDROCORTISONE. [Concomitant]
     Active Substance: HYDROCORTISONE
     Dosage: 2.5 MG, 3X/DAY
     Route: 007
  2. GENOTROPIN [Suspect]
     Active Substance: SOMATROPIN
     Indication: HYPOPITUITARISM
     Dosage: 0.2 MG INCREASED TO 0.4 MG
     Route: 058
     Dates: start: 20081020, end: 200910
  3. NORDITROPIN [Suspect]
     Active Substance: SOMATROPIN
     Indication: HYPOPITUITARISM
     Dosage: 0.3 MG, UNK
     Route: 058
     Dates: start: 201101, end: 20111123
  4. GENOTROPIN [Suspect]
     Active Substance: SOMATROPIN
     Dosage: 0.3 MG, UNK
     Route: 058
     Dates: start: 200910, end: 201101

REACTIONS (5)
  - Arthralgia [Not Recovered/Not Resolved]
  - Pain in extremity [Not Recovered/Not Resolved]
  - Osteochondrosis [Not Recovered/Not Resolved]
  - Hip surgery [Unknown]
  - Gait disturbance [Not Recovered/Not Resolved]

NARRATIVE: CASE EVENT DATE: 20111109
